FAERS Safety Report 12350984 (Version 1)
Quarter: 2016Q2

REPORT INFORMATION
  Report Type: Spontaneous
  Country: JP (occurrence: JP)
  Receive Date: 20160419
  Receipt Date: 20160419
  Transmission Date: 20160815
  Serious: Yes (Death)
  Sender: FDA-Public Use
  Company Number: JP-MALLINCKRODT-T201601276

PATIENT
  Age: 52 Year
  Sex: Male
  Weight: 65 kg

DRUGS (25)
  1. METHADONE [Suspect]
     Active Substance: METHADONE HYDROCHLORIDE
     Indication: PRODUCT USED FOR UNKNOWN INDICATION
     Dosage: 10 MG (10 MG DAILY DOSE)
     Route: 048
     Dates: start: 20150302, end: 20150308
  2. METHADONE [Suspect]
     Active Substance: METHADONE HYDROCHLORIDE
     Dosage: (15 MG DAILY DOSE)
     Route: 048
     Dates: start: 20150309, end: 20150315
  3. METHADONE [Suspect]
     Active Substance: METHADONE HYDROCHLORIDE
     Dosage: 20 MG (40 MG DAILY DOSE)
     Route: 048
     Dates: start: 20150330, end: 20150424
  4. LYRICA [Concomitant]
     Active Substance: PREGABALIN
     Indication: ANALGESIC THERAPY
     Dosage: 150 MG
     Route: 048
     Dates: start: 20150227, end: 20150424
  5. NEXIUM [Concomitant]
     Active Substance: ESOMEPRAZOLE MAGNESIUM
     Dosage: 20 MG
     Route: 048
     Dates: start: 2015, end: 20150424
  6. CYMBALTA [Concomitant]
     Active Substance: DULOXETINE HYDROCHLORIDE
     Indication: ANALGESIC THERAPY
     Dosage: 20 MG
     Route: 048
     Dates: start: 20150317, end: 20150402
  7. AMITIZA [Concomitant]
     Active Substance: LUBIPROSTONE
     Dosage: 48 MG
     Route: 048
     Dates: start: 20150218, end: 20150424
  8. MORPHINE HYDROCHLORIDE [Concomitant]
     Active Substance: MORPHINE HYDROCHLORIDE
     Dosage: 150 MG
     Route: 051
     Dates: start: 20150407, end: 20150409
  9. OXINORM [Concomitant]
     Active Substance: OXYCODONE HYDROCHLORIDE
     Indication: ANALGESIC THERAPY
     Dosage: 20 - 25 MG
     Route: 048
     Dates: start: 20150226
  10. NAPA [Concomitant]
     Active Substance: ACETAMINOPHEN
     Indication: ANALGESIC THERAPY
     Dosage: 2400 MG
     Route: 048
  11. LOXOPROFEN NA [Concomitant]
     Active Substance: LOXOPROFEN SODIUM
     Indication: ANALGESIC THERAPY
     Dosage: 180 MG
     Route: 048
     Dates: end: 20150424
  12. MOSAPRIDE CITRATE [Concomitant]
     Active Substance: MOSAPRIDE CITRATE
     Dosage: 15 MG
     Route: 048
     Dates: start: 20150306, end: 20150326
  13. METHADONE [Suspect]
     Active Substance: METHADONE HYDROCHLORIDE
     Dosage: 10 MG (20 MG DAILY DOSE)
     Route: 048
     Dates: start: 20150316, end: 20150322
  14. METHADONE [Suspect]
     Active Substance: METHADONE HYDROCHLORIDE
     Dosage: 15 MG (30 MG DAILY DOSE)
     Route: 048
     Dates: start: 20150323, end: 20150329
  15. FENTOS [Concomitant]
     Active Substance: FENTANYL
     Indication: ANALGESIC THERAPY
     Dosage: 10 MG
     Route: 062
     Dates: start: 20150108, end: 20150427
  16. MORPHINE HYDROCHLORIDE [Concomitant]
     Active Substance: MORPHINE HYDROCHLORIDE
     Dosage: 100 MG
     Route: 051
     Dates: start: 20150330, end: 20150406
  17. DECADRON [Concomitant]
     Active Substance: DEXAMETHASONE
     Dosage: 2 MG
     Route: 048
     Dates: end: 2015
  18. SEDIEL [Concomitant]
     Active Substance: TANDOSPIRONE
     Dosage: 10 MG
     Route: 048
     Dates: start: 20150306, end: 20150520
  19. URSODEOXYCHOLIC ACID [Concomitant]
     Active Substance: URSODIOL
     Dosage: 300 MG
     Route: 048
     Dates: start: 20150123, end: 20150326
  20. MORPHINE HYDROCHLORIDE [Concomitant]
     Active Substance: MORPHINE HYDROCHLORIDE
     Dosage: 20 MG
     Route: 051
     Dates: start: 20150323, end: 20150325
  21. MORPHINE HYDROCHLORIDE [Concomitant]
     Active Substance: MORPHINE HYDROCHLORIDE
     Dosage: 50 MG
     Route: 051
     Dates: start: 20150326, end: 20150329
  22. MORPHINE HYDROCHLORIDE [Concomitant]
     Active Substance: MORPHINE HYDROCHLORIDE
     Dosage: 240 MG
     Route: 051
     Dates: start: 20150410
  23. REFLEX [Concomitant]
     Active Substance: MIRTAZAPINE
     Dosage: 45 MG
     Route: 048
     Dates: start: 20150203, end: 20150414
  24. GABAPEN [Concomitant]
     Active Substance: GABAPENTIN
     Indication: ANALGESIC THERAPY
     Dosage: 200 MG
     Route: 048
     Dates: start: 20150116, end: 20150316
  25. CYMBALTA [Concomitant]
     Active Substance: DULOXETINE HYDROCHLORIDE
     Dosage: 40 MG
     Route: 048
     Dates: start: 20150403, end: 20150424

REACTIONS (1)
  - Lung adenocarcinoma [Fatal]

NARRATIVE: CASE EVENT DATE: 20150427
